FAERS Safety Report 7803123-X (Version None)
Quarter: 2011Q4

REPORT INFORMATION
  Report Type: 
  Country: None (occurrence: None)
  Receive Date: 20111007
  Receipt Date: 20111003
  Transmission Date: 20120403
  Serious: Yes (Hospitalization)
  Sender: FDA-Public Use
  Company Number: PHHY2011IT87526

PATIENT
  Sex: Female

DRUGS (1)
  1. DICLOFENAC POTASSIUM [Suspect]
     Indication: PAIN
     Dosage: 1 DF (1 POSOLOGIC UNIT)
     Route: 048
     Dates: start: 20110901, end: 20110901

REACTIONS (4)
  - RASH GENERALISED [None]
  - STRIDOR [None]
  - BRONCHIAL DISORDER [None]
  - DYSPNOEA [None]
